FAERS Safety Report 4616339-0 (Version None)
Quarter: 2005Q1

REPORT INFORMATION
  Report Type: 
  Country: None (occurrence: None)
  Receive Date: 20050321
  Receipt Date: 20050309
  Transmission Date: 20050727
  Serious: Yes (Hospitalization)
  Sender: FDA-Public Use
  Company Number: HQWYE058311MAR05

PATIENT
  Age: 54 Year
  Sex: Female
  Weight: 65.83 kg

DRUGS (9)
  1. EFFEXOR XR [Suspect]
     Indication: DEPRESSION
     Dosage: 75 + 150 + 225 MG 1X PER 1 DAY, ORAL
     Route: 048
     Dates: end: 20030101
  2. EFFEXOR XR [Suspect]
     Indication: MIGRAINE
     Dosage: 75 + 150 + 225 MG 1X PER 1 DAY, ORAL
     Route: 048
     Dates: end: 20030101
  3. EFFEXOR XR [Suspect]
     Indication: DEPRESSION
     Dosage: 75 + 150 + 225 MG 1X PER 1 DAY, ORAL
     Route: 048
     Dates: start: 20020101
  4. EFFEXOR XR [Suspect]
     Indication: MIGRAINE
     Dosage: 75 + 150 + 225 MG 1X PER 1 DAY, ORAL
     Route: 048
     Dates: start: 20020101
  5. EFFEXOR XR [Suspect]
     Indication: DEPRESSION
     Dosage: 75 + 150 + 225 MG 1X PER 1 DAY, ORAL
     Route: 048
     Dates: start: 20030101
  6. EFFEXOR XR [Suspect]
     Indication: MIGRAINE
     Dosage: 75 + 150 + 225 MG 1X PER 1 DAY, ORAL
     Route: 048
     Dates: start: 20030101
  7. SYNTHROID [Concomitant]
  8. MENEST [Concomitant]
  9. CLONIDINE [Concomitant]

REACTIONS (6)
  - ABDOMINAL DISTENSION [None]
  - ABDOMINAL PAIN [None]
  - MEDICATION RESIDUE [None]
  - RENAL NEOPLASM [None]
  - SOMNOLENCE [None]
  - WEIGHT INCREASED [None]
